FAERS Safety Report 4457672-5 (Version None)
Quarter: 2004Q3

REPORT INFORMATION
  Report Type: 
  Country: None (occurrence: None)
  Receive Date: 20040922
  Receipt Date: 20040903
  Transmission Date: 20050211
  Serious: Yes (Death)
  Sender: FDA-Public Use
  Company Number: JP_040102553

PATIENT
  Age: 69 Year
  Sex: Female
  Weight: 37 kg

DRUGS (3)
  1. GEMZAR [Suspect]
     Indication: PANCREATIC CARCINOMA
     Dosage: 1000 MG/M2/OTHER
     Dates: start: 20030319, end: 20030326
  2. MS CONTIN [Concomitant]
  3. TAGAMET [Concomitant]

REACTIONS (2)
  - NASOPHARYNGITIS [None]
  - PNEUMONIA [None]
